FAERS Safety Report 5392212-8 (Version None)
Quarter: 2007Q3

REPORT INFORMATION
  Report Type: 
  Country: None (occurrence: None)
  Receive Date: 20070717
  Receipt Date: 20070717
  Transmission Date: 20080115
  Serious: No
  Sender: FDA-Public Use
  Company Number: None

PATIENT
  Age: 32 Year
  Sex: Male

DRUGS (1)
  1. WELLBUTRIN SR [Suspect]
     Dosage: 1 TAB BID PO
     Route: 048

REACTIONS (2)
  - FEELING ABNORMAL [None]
  - PARAESTHESIA [None]
